FAERS Safety Report 17246560 (Version 2)
Quarter: 2020Q1

REPORT INFORMATION
  Report Type: Spontaneous
  Country: US (occurrence: US)
  Receive Date: 20200108
  Receipt Date: 20200108
  Transmission Date: 20200409
  Serious: Yes (Death, Hospitalization)
  Sender: FDA-Public Use
  Company Number: US-BAYER-2020-001164

PATIENT
  Age: 68 Year
  Sex: Female

DRUGS (12)
  1. RIVAROXABAN [Suspect]
     Active Substance: RIVAROXABAN
  2. VENLAFAXINE [Suspect]
     Active Substance: VENLAFAXINE HYDROCHLORIDE
  3. ALBUTEROL [SALBUTAMOL] [Suspect]
     Active Substance: ALBUTEROL
  4. BENZTROPINE [BENZATROPINE] [Suspect]
     Active Substance: BENZTROPINE
  5. ZOLPIDEM [Suspect]
     Active Substance: ZOLPIDEM TARTRATE
  6. MONTELUKAST [Suspect]
     Active Substance: MONTELUKAST SODIUM
  7. PARACETAMOL [Suspect]
     Active Substance: ACETAMINOPHEN
     Dosage: UNK
  8. DILTIAZEM. [Suspect]
     Active Substance: DILTIAZEM
  9. METFORMIN [Suspect]
     Active Substance: METFORMIN HYDROCHLORIDE
  10. METHOCARBAMOL. [Suspect]
     Active Substance: METHOCARBAMOL
  11. EPHEDRINE;THEOPHYLLINE [Suspect]
     Active Substance: EPHEDRINE HYDROCHLORIDE\THEOPHYLLINE
  12. SIMVASTATIN. [Suspect]
     Active Substance: SIMVASTATIN

REACTIONS (2)
  - Completed suicide [Fatal]
  - Toxicity to various agents [Fatal]
